FAERS Safety Report 19647374 (Version 1)
Quarter: 2021Q3

REPORT INFORMATION
  Report Type: Other
  Country: CA (occurrence: CA)
  Receive Date: 20210802
  Receipt Date: 20210802
  Transmission Date: 20211014
  Serious: Yes (Other)
  Sender: FDA-Public Use
  Company Number: CA-ROCHE-2877612

PATIENT
  Sex: Female

DRUGS (1)
  1. LUCENTIS [Suspect]
     Active Substance: RANIBIZUMAB
     Indication: MACULAR DEGENERATION
     Dosage: SHE GETS NEEDLES EVERY 6 MONTHS
     Route: 065

REACTIONS (4)
  - Dementia Alzheimer^s type [Unknown]
  - Off label use [Unknown]
  - Memory impairment [Unknown]
  - Inappropriate schedule of product administration [Unknown]
